FAERS Safety Report 4355141-4 (Version None)
Quarter: 2004Q2

REPORT INFORMATION
  Report Type: 
  Country: None (occurrence: None)
  Receive Date: 20040510
  Receipt Date: 20040426
  Transmission Date: 20050107
  Serious: Yes (Other)
  Sender: FDA-Public Use
  Company Number: 200411716FR

PATIENT
  Age: 56 Year
  Sex: Male

DRUGS (2)
  1. KETEK [Suspect]
     Indication: SINUSITIS
     Route: 048
     Dates: start: 20040201
  2. CELESTENE [Concomitant]
     Dates: start: 20040201

REACTIONS (9)
  - ASTHENIA [None]
  - CAMPYLOBACTER INFECTION [None]
  - CLOSTRIDIUM COLITIS [None]
  - FLATULENCE [None]
  - HAEMATOCHEZIA [None]
  - ILEITIS [None]
  - LYMPHOID TISSUE HYPERPLASIA [None]
  - ULCER [None]
  - YERSINIA INFECTION [None]
